FAERS Safety Report 5087900-7 (Version None)
Quarter: 2006Q3

REPORT INFORMATION
  Report Type: 
  Country: None (occurrence: None)
  Receive Date: 20060821
  Receipt Date: 20060821
  Transmission Date: 20061208
  Serious: Yes (Other)
  Sender: FDA-Public Use
  Company Number: None

PATIENT
  Age: 44 Year
  Sex: Female
  Weight: 94.3482 kg

DRUGS (2)
  1. OXYCONTIN [Suspect]
     Indication: FIBROMYALGIA
     Dosage: 80MG  TID
  2. OXYCONTIN [Suspect]
     Indication: NEURITIS
     Dosage: 80MG  TID

REACTIONS (1)
  - DRUG HYPERSENSITIVITY [None]
